FAERS Safety Report 4955751-7 (Version None)
Quarter: 2006Q1

REPORT INFORMATION
  Report Type: 
  Country: None (occurrence: None)
  Receive Date: 20060127
  Receipt Date: 20050921
  Transmission Date: 20060701
  Serious: Yes (Hospitalization, Other)
  Sender: FDA-Public Use
  Company Number: 2005-US-00301

PATIENT
  Age: 44 Year
  Sex: Male
  Weight: 61.2356 kg

DRUGS (5)
  1. CLOZAPINE [Suspect]
     Indication: SCHIZOPHRENIA
     Dosage: 700 MG, QD, ORAL
     Route: 048
     Dates: start: 20040910
  2. BUPROPION [Suspect]
     Indication: DEPRESSION
     Dosage: 300 MG, QD, ORAL
     Route: 048
     Dates: start: 20050107, end: 20050401
  3. QUETIAPINE [Concomitant]
  4. PAROXETINE HYDROCHLORIDE [Concomitant]
  5. SIMVASTATIN [Concomitant]

REACTIONS (2)
  - CONVULSION [None]
  - MENTAL STATUS CHANGES [None]
